FAERS Safety Report 23066178 (Version 1)
Quarter: 2023Q4

REPORT INFORMATION
  Report Type: Report from Study
  Country: GB (occurrence: GB)
  Receive Date: 20231014
  Receipt Date: 20231014
  Transmission Date: 20240110
  Serious: Yes (Hospitalization)
  Sender: FDA-Public Use
  Company Number: GB-JNJFOC-20230953960

PATIENT
  Age: 84 Year
  Sex: Female
  Weight: 94 kg

DRUGS (37)
  1. DEXAMETHASONE [Suspect]
     Active Substance: DEXAMETHASONE
     Indication: Plasma cell myeloma
     Route: 065
  2. POMALIDOMIDE [Suspect]
     Active Substance: POMALIDOMIDE
     Indication: Plasma cell myeloma
     Route: 065
  3. TECLISTAMAB [Suspect]
     Active Substance: TECLISTAMAB
     Indication: Plasma cell myeloma
     Route: 058
  4. VELCADE [Suspect]
     Active Substance: BORTEZOMIB
     Indication: Plasma cell myeloma
     Route: 065
  5. AMOXICILLIN [Concomitant]
     Active Substance: AMOXICILLIN
     Indication: Neutropenia
     Route: 065
     Dates: start: 20230114, end: 20230114
  6. AMOXICILLIN [Concomitant]
     Active Substance: AMOXICILLIN
     Indication: Respiratory tract infection
  7. APIXABAN [Concomitant]
     Active Substance: APIXABAN
     Indication: Pulmonary embolism
     Route: 065
     Dates: start: 20221111, end: 20221118
  8. APIXABAN [Concomitant]
     Active Substance: APIXABAN
     Indication: Heart rate irregular
     Route: 065
     Dates: start: 20220727, end: 20220801
  9. APIXABAN [Concomitant]
     Active Substance: APIXABAN
     Route: 065
     Dates: start: 20221119
  10. BISOPROLOL [Concomitant]
     Active Substance: BISOPROLOL\BISOPROLOL FUMARATE
     Indication: Heart rate irregular
     Route: 065
     Dates: start: 20230104
  11. BISOPROLOL [Concomitant]
     Active Substance: BISOPROLOL\BISOPROLOL FUMARATE
     Indication: Atrial fibrillation
     Route: 065
  12. BISOPROLOL [Concomitant]
     Active Substance: BISOPROLOL\BISOPROLOL FUMARATE
     Indication: Right ventricular dysfunction
     Route: 065
     Dates: start: 20220809, end: 20230103
  13. BISOPROLOL [Concomitant]
     Active Substance: BISOPROLOL\BISOPROLOL FUMARATE
     Indication: Atrial fibrillation
  14. BISOPROLOL [Concomitant]
     Active Substance: BISOPROLOL\BISOPROLOL FUMARATE
     Indication: Heart rate irregular
  15. CIPROFLOXACIN [Concomitant]
     Active Substance: CIPROFLOXACIN
     Indication: Sepsis
     Route: 065
     Dates: start: 20220830, end: 20220903
  16. CLARITHROMYCIN [Concomitant]
     Active Substance: CLARITHROMYCIN
     Indication: Neutropenia
     Route: 065
     Dates: start: 20230114, end: 20230114
  17. CLARITHROMYCIN [Concomitant]
     Active Substance: CLARITHROMYCIN
     Indication: Respiratory tract infection
  18. AMOXICILLIN\CLAVULANATE POTASSIUM [Concomitant]
     Active Substance: AMOXICILLIN\CLAVULANATE POTASSIUM
     Indication: Neutropenia
     Route: 065
     Dates: start: 20230114, end: 20230122
  19. AMOXICILLIN\CLAVULANATE POTASSIUM [Concomitant]
     Active Substance: AMOXICILLIN\CLAVULANATE POTASSIUM
     Indication: Respiratory tract infection
     Route: 065
  20. CHOLECALCIFEROL [Concomitant]
     Active Substance: CHOLECALCIFEROL
     Indication: Diarrhoea
     Route: 065
     Dates: start: 20221112
  21. DOCUSATE SODIUM [Concomitant]
     Active Substance: DOCUSATE SODIUM
     Indication: Constipation
     Route: 065
     Dates: start: 20221111
  22. EDOXABAN [Concomitant]
     Active Substance: EDOXABAN
     Indication: Heart rate irregular
     Route: 065
     Dates: start: 20220802, end: 20221111
  23. ENOXAPARIN [Concomitant]
     Active Substance: ENOXAPARIN
     Indication: Pulmonary embolism
     Route: 065
     Dates: start: 20221110
  24. FOLIC ACID [Concomitant]
     Active Substance: FOLIC ACID
     Indication: Sepsis
     Route: 065
     Dates: start: 20221112
  25. FUROSEMIDE [Concomitant]
     Active Substance: FUROSEMIDE
     Indication: Right ventricular dysfunction
     Route: 065
     Dates: start: 20230104
  26. FUROSEMIDE [Concomitant]
     Active Substance: FUROSEMIDE
     Indication: Oedema peripheral
  27. HYDROCORTISONE [Concomitant]
     Active Substance: HYDROCORTISONE
     Indication: Respiratory syncytial virus infection
     Route: 065
     Dates: start: 20230115, end: 20230115
  28. IPRATROPIUM BROMIDE [Concomitant]
     Active Substance: IPRATROPIUM BROMIDE\IPRATROPIUM BROMIDE ANHYDROUS
     Indication: Respiratory syncytial virus infection
     Route: 065
     Dates: start: 20230115, end: 20230115
  29. LANSOPRAZOLE [Concomitant]
     Active Substance: LANSOPRAZOLE
     Indication: Dysgeusia
     Route: 065
     Dates: start: 20220808
  30. SODIUM CHLORIDE [Concomitant]
     Active Substance: SODIUM CHLORIDE
     Indication: Respiratory syncytial virus infection
     Dosage: 0.9%
     Route: 065
     Dates: start: 20230115, end: 20230122
  31. FILGRASTIM [Concomitant]
     Active Substance: FILGRASTIM
     Indication: Neutropenia
     Route: 065
     Dates: start: 20220808
  32. ONDANSETRON [Concomitant]
     Active Substance: ONDANSETRON
     Indication: Respiratory syncytial virus infection
     Route: 065
     Dates: start: 20221112
  33. OXYGEN [Concomitant]
     Active Substance: OXYGEN
     Indication: Hypoxia
     Dates: start: 20230115, end: 20230117
  34. RIBAVIRIN [Concomitant]
     Active Substance: RIBAVIRIN
     Indication: Respiratory syncytial virus infection
     Route: 065
     Dates: start: 20230114, end: 20230122
  35. ALBUTEROL [Concomitant]
     Active Substance: ALBUTEROL
     Indication: Respiratory syncytial virus infection
     Route: 065
     Dates: start: 20230115, end: 20230122
  36. SOTROVIMAB [Concomitant]
     Active Substance: SOTROVIMAB
     Indication: COVID-19
     Route: 065
     Dates: start: 20221013, end: 20221013
  37. PIPERACILLIN SODIUM\TAZOBACTAM SODIUM [Concomitant]
     Active Substance: PIPERACILLIN SODIUM\TAZOBACTAM SODIUM
     Indication: Lower respiratory tract infection
     Route: 065
     Dates: start: 20230116, end: 20230118

REACTIONS (3)
  - Fall [Recovered/Resolved with Sequelae]
  - Chronic kidney disease [Recovered/Resolved]
  - Rib fracture [Recovered/Resolved]

NARRATIVE: CASE EVENT DATE: 20220809
